FAERS Safety Report 4500589-8 (Version None)
Quarter: 2004Q4

REPORT INFORMATION
  Report Type: 
  Country: None (occurrence: None)
  Receive Date: 20041115
  Receipt Date: 20040708
  Transmission Date: 20050328
  Serious: Yes (Hospitalization)
  Sender: FDA-Public Use
  Company Number: US-ABBOTT-04P-163-0266356-00

PATIENT
  Sex: Female
  Weight: 97.2 kg

DRUGS (16)
  1. TARKA [Suspect]
     Indication: HEART RATE INCREASED
     Dosage: 2 MG /180 MG
     Route: 048
     Dates: start: 20040326, end: 20040401
  2. GLYBURIDE [Concomitant]
     Indication: DIABETES MELLITUS NON-INSULIN-DEPENDENT
     Route: 048
     Dates: start: 19990101
  3. ACTOS [Concomitant]
     Indication: DIABETES MELLITUS NON-INSULIN-DEPENDENT
     Route: 048
     Dates: start: 19990101
  4. PRAVASTATIN SODIUM [Concomitant]
     Indication: HYPERLIPIDAEMIA
     Route: 048
     Dates: start: 19990101, end: 20040419
  5. GLIBOMET [Concomitant]
     Indication: DRUG USE FOR UNKNOWN INDICATION
     Dosage: 2.5/500
     Dates: start: 20010921
  6. GLIBOMET [Concomitant]
     Dosage: 1.25/25 MG
     Dates: start: 20010419, end: 20010921
  7. SERTRALINE HYDROCHLORIDE [Concomitant]
     Indication: DRUG USE FOR UNKNOWN INDICATION
     Dates: start: 20010207
  8. LANSOPRAZOLE [Concomitant]
     Indication: DRUG USE FOR UNKNOWN INDICATION
     Route: 048
     Dates: start: 20010207, end: 20040715
  9. METOPROLOL TARTRATE [Concomitant]
     Indication: DRUG USE FOR UNKNOWN INDICATION
  10. HYDROCHLOROTHIAZIDE [Concomitant]
     Indication: DRUG USE FOR UNKNOWN INDICATION
     Dates: start: 20040325
  11. BISELECT [Concomitant]
     Indication: DRUG USE FOR UNKNOWN INDICATION
     Dosage: 10/6.25
     Dates: start: 20010207, end: 20040315
  12. LISINOPRIL [Concomitant]
     Indication: DRUG USE FOR UNKNOWN INDICATION
     Dates: start: 20010207, end: 20040315
  13. LISINOPRIL [Concomitant]
     Dates: start: 20040513
  14. LOTREL [Concomitant]
     Indication: DRUG USE FOR UNKNOWN INDICATION
     Dosage: 5/20
     Dates: start: 20040315, end: 20040325
  15. ESTROPIPATE [Concomitant]
     Indication: DRUG USE FOR UNKNOWN INDICATION
     Dates: start: 20010207, end: 20040315
  16. IRON [Concomitant]
     Indication: DRUG USE FOR UNKNOWN INDICATION
     Dates: start: 20040315, end: 20040513

REACTIONS (66)
  - ABDOMINAL PAIN [None]
  - ALOPECIA [None]
  - ARTHRALGIA [None]
  - BACK PAIN [None]
  - BLOOD CREATININE INCREASED [None]
  - BLOOD GLUCOSE INCREASED [None]
  - BLOOD UREA INCREASED [None]
  - CHILLS [None]
  - CONJUNCTIVITIS [None]
  - COUGH [None]
  - DEHYDRATION [None]
  - DELIRIUM [None]
  - DRUG INEFFECTIVE [None]
  - DYSPHAGIA [None]
  - EAR PAIN [None]
  - EMOTIONAL DISTRESS [None]
  - ERYTHEMA [None]
  - EYE DISCHARGE [None]
  - EYE PAIN [None]
  - FACE OEDEMA [None]
  - FACIAL PAIN [None]
  - FAECALOMA [None]
  - FATIGUE [None]
  - FEELING ABNORMAL [None]
  - FUNGAL INFECTION [None]
  - HAEMORRHOIDS [None]
  - HEADACHE [None]
  - HYPERSENSITIVITY [None]
  - HYPOTENSION [None]
  - IMPAIRED SELF-CARE [None]
  - INTERVERTEBRAL DISC DEGENERATION [None]
  - LOCALISED OEDEMA [None]
  - MARKEDLY REDUCED DIETARY INTAKE [None]
  - MOBILITY DECREASED [None]
  - MUCOSA VESICLE [None]
  - MUSCULOSKELETAL DISCOMFORT [None]
  - NASAL CONGESTION [None]
  - NASAL DISCOMFORT [None]
  - NASAL DRYNESS [None]
  - NAUSEA [None]
  - NECK PAIN [None]
  - OEDEMA PERIPHERAL [None]
  - ORAL PAIN [None]
  - PALLOR [None]
  - PAROTID GLAND ENLARGEMENT [None]
  - PERIORBITAL OEDEMA [None]
  - PHARYNGITIS [None]
  - POST PROCEDURAL PAIN [None]
  - PROCTALGIA [None]
  - PRURITUS [None]
  - PYREXIA [None]
  - RECTAL TENESMUS [None]
  - RENAL FAILURE CHRONIC [None]
  - SELF-MEDICATION [None]
  - SHOCK [None]
  - SKIN DESQUAMATION [None]
  - STEVENS-JOHNSON SYNDROME [None]
  - TACHYCARDIA [None]
  - THROAT TIGHTNESS [None]
  - TONSILLAR DISORDER [None]
  - TRICHORRHEXIS [None]
  - URTICARIA [None]
  - VAGINITIS [None]
  - VOMITING [None]
  - WHITE BLOOD CELL COUNT INCREASED [None]
  - XEROSIS [None]
